FAERS Safety Report 19303661 (Version 1)
Quarter: 2021Q2

REPORT INFORMATION
  Report Type: Spontaneous
  Country: FR (occurrence: FR)
  Receive Date: 20210525
  Receipt Date: 20210525
  Transmission Date: 20210717
  Serious: Yes (Hospitalization)
  Sender: FDA-Public Use
  Company Number: FR-009507513-2105FRA004461

PATIENT
  Age: 73 Year
  Sex: Male
  Weight: 63 kg

DRUGS (3)
  1. KEYTRUDA [Suspect]
     Active Substance: PEMBROLIZUMAB
     Indication: LUNG ADENOCARCINOMA
     Dosage: 200 MILLIGRAM, CYCLICAL; FORMULATION REPORTED AS POWDER FOR CONCENTRATE FOR SOLUTION FOR INFUSION
     Route: 041
     Dates: start: 20210407, end: 20210407
  2. DALACIN [CLINDAMYCIN PHOSPHATE] [Suspect]
     Active Substance: CLINDAMYCIN PHOSPHATE
     Indication: ERYSIPELAS
     Dosage: 1800 MILLIGRAM, QD
     Route: 041
     Dates: start: 20210414, end: 20210419
  3. ALIMTA [Suspect]
     Active Substance: PEMETREXED DISODIUM
     Indication: LUNG ADENOCARCINOMA
     Dosage: 860 MILLIGRAM, CYCLICAL
     Route: 041
     Dates: start: 20210407, end: 20210407

REACTIONS (1)
  - Neutropenia [Recovered/Resolved]

NARRATIVE: CASE EVENT DATE: 20210419
